FAERS Safety Report 5779418-0 (Version None)
Quarter: 2008Q2

REPORT INFORMATION
  Report Type: 
  Country: None (occurrence: None)
  Receive Date: 20080601
  Receipt Date: 20080103
  Transmission Date: 20081010
  Serious: No
  Sender: FDA-Public Use
  Company Number: 2006PV023481

PATIENT
  Age: 44 Year
  Sex: Female

DRUGS (4)
  1. EXENATIDE(EXENATIDE) PEN,DISPOSABLE [Suspect]
     Indication: INSULIN RESISTANCE
     Dosage: 5 UG, 2/D, SUBCUTANEOUS
     Route: 058
     Dates: start: 20060929, end: 20061001
  2. PRENATAL VITAMINS /01459301/(ASCORBIC ACID, BIOTIN, MINERALS NOS, NICO [Concomitant]
  3. PROPYLTHIOURACIL [Concomitant]
  4. IRON W/VITAMINS NOS (IRON, VITAMINS NOS) [Concomitant]

REACTIONS (3)
  - BLOOD GLUCOSE INCREASED [None]
  - DRUG EXPOSURE DURING PREGNANCY [None]
  - VAGINAL HAEMORRHAGE [None]
